FAERS Safety Report 6584835-5 (Version None)
Quarter: 2010Q1

REPORT INFORMATION
  Report Type: 
  Country: None (occurrence: None)
  Receive Date: 20100217
  Receipt Date: 20100111
  Transmission Date: 20100710
  Serious: No
  Sender: FDA-Public Use
  Company Number: PHHY2009GB53486

PATIENT
  Sex: Female
  Weight: 80.6 kg

DRUGS (2)
  1. CLOZARIL [Suspect]
     Indication: SCHIZOPHRENIA
     Dosage: 300 MG/DAY
     Route: 048
     Dates: start: 20091116
  2. FLUOXETINE [Concomitant]
     Indication: DEPRESSED MOOD
     Dosage: 20 MG
     Route: 048
     Dates: start: 20091101

REACTIONS (9)
  - BODY TEMPERATURE INCREASED [None]
  - DIZZINESS [None]
  - NEUTROPHIL COUNT INCREASED [None]
  - OROPHARYNGEAL PAIN [None]
  - PALPITATIONS [None]
  - TACHYCARDIA [None]
  - TONSILLITIS [None]
  - UPPER RESPIRATORY TRACT INFECTION [None]
  - WHITE BLOOD CELL COUNT INCREASED [None]
